FAERS Safety Report 4634924-7 (Version None)
Quarter: 2005Q2

REPORT INFORMATION
  Report Type: 
  Country: None (occurrence: None)
  Receive Date: 20050414
  Receipt Date: 20050330
  Transmission Date: 20051028
  Serious: Yes (Hospitalization)
  Sender: FDA-Public Use
  Company Number: US-JNJFOC-20050304626

PATIENT
  Sex: Female
  Weight: 68.49 kg

DRUGS (4)
  1. DURAGESIC-100 [Suspect]
     Route: 062
     Dates: start: 20031203
  2. DURAGESIC-100 [Suspect]
     Route: 062
     Dates: start: 20031203
  3. DURAGESIC-100 [Suspect]
     Route: 062
     Dates: start: 20031203
  4. DURAGESIC-100 [Suspect]
     Indication: PAIN
     Route: 062
     Dates: start: 20031203

REACTIONS (16)
  - ANXIETY [None]
  - ASTHENIA [None]
  - BLOOD PRESSURE INCREASED [None]
  - CHOLELITHIASIS [None]
  - DIZZINESS [None]
  - DRUG WITHDRAWAL SYNDROME [None]
  - DYSPEPSIA [None]
  - HYPERHIDROSIS [None]
  - INJURY [None]
  - INSOMNIA [None]
  - MICTURITION URGENCY [None]
  - MIGRAINE [None]
  - OVERDOSE [None]
  - PAIN [None]
  - PANCREATITIS [None]
  - URINARY HESITATION [None]
